FAERS Safety Report 11118740 (Version 1)
Quarter: 2015Q2

REPORT INFORMATION
  Report Type: Spontaneous
  Country: US (occurrence: None)
  Receive Date: 20150515
  Receipt Date: 20150515
  Transmission Date: 20150821
  Serious: Yes (Hospitalization)
  Sender: FDA-Public Use
  Company Number: None

PATIENT
  Age: 52 Year
  Sex: Male
  Weight: 61.6 kg

DRUGS (1)
  1. CISPLATIN. [Suspect]
     Active Substance: CISPLATIN
     Dates: end: 20150429

REACTIONS (3)
  - Weight decreased [None]
  - Refusal of treatment by patient [None]
  - Treatment noncompliance [None]

NARRATIVE: CASE EVENT DATE: 20150504
